FAERS Safety Report 22276686 (Version 5)
Quarter: 2023Q2

REPORT INFORMATION
  Report Type: Other
  Country: ME (occurrence: None)
  Receive Date: 20230503
  Receipt Date: 20230630
  Transmission Date: 20230722
  Serious: Yes (Death, Hospitalization)
  Sender: FDA-Public Use
  Company Number: ME-ROCHE-3316491

PATIENT
  Age: 58 Year
  Sex: Female
  Weight: 80 kg

DRUGS (10)
  1. OCRELIZUMAB [Suspect]
     Active Substance: OCRELIZUMAB
     Indication: Primary progressive multiple sclerosis
     Dosage: SUBSEQUENT DOSES ON 29/MAY/2019, 04/NOV/2019, 22/APR/2020, 13/OCT/2020, 30/MAR/2021, 21/SEP/2021, 15
     Route: 042
     Dates: start: 20190514
  2. OCRELIZUMAB [Suspect]
     Active Substance: OCRELIZUMAB
     Route: 042
     Dates: start: 20191104, end: 20191104
  3. OCRELIZUMAB [Suspect]
     Active Substance: OCRELIZUMAB
     Route: 042
     Dates: start: 20200422, end: 20200422
  4. OCRELIZUMAB [Suspect]
     Active Substance: OCRELIZUMAB
     Route: 042
     Dates: start: 20220831, end: 20220831
  5. OCRELIZUMAB [Suspect]
     Active Substance: OCRELIZUMAB
     Route: 042
     Dates: start: 20201013, end: 20201013
  6. OCRELIZUMAB [Suspect]
     Active Substance: OCRELIZUMAB
     Route: 042
     Dates: start: 20210921, end: 20210921
  7. PIPERACILLIN SODIUM\TAZOBACTAM SODIUM [Concomitant]
     Active Substance: PIPERACILLIN SODIUM\TAZOBACTAM SODIUM
     Route: 042
     Dates: start: 20230320
  8. FILGRASTIM [Concomitant]
     Active Substance: FILGRASTIM
     Dosage: 48 U
     Route: 058
     Dates: start: 20230323, end: 202303
  9. FOLIC ACID [Concomitant]
     Active Substance: FOLIC ACID
     Route: 048
     Dates: start: 20230323, end: 202303
  10. MOXIFLOXACIN [Concomitant]
     Active Substance: MOXIFLOXACIN
     Route: 042
     Dates: start: 20230320

REACTIONS (2)
  - Coronavirus infection [Fatal]
  - Urinary tract infection [Not Recovered/Not Resolved]

NARRATIVE: CASE EVENT DATE: 20230228
